FAERS Safety Report 5739886-7 (Version None)
Quarter: 2008Q2

REPORT INFORMATION
  Report Type: 
  Country: None (occurrence: None)
  Receive Date: 20080513
  Receipt Date: 20080513
  Transmission Date: 20081010
  Serious: Yes (Disabling, Other)
  Sender: FDA-Public Use
  Company Number: None

PATIENT
  Age: 48 Year
  Sex: Female
  Weight: 61.2356 kg

DRUGS (2)
  1. CYMBALTA [Suspect]
     Indication: FIBROMYALGIA
     Dosage: 60 MG ONCE DAILY PO
     Route: 048
     Dates: start: 20070920, end: 20080401
  2. CYMBALTA [Suspect]
     Indication: PAIN MANAGEMENT
     Dosage: 60 MG ONCE DAILY PO
     Route: 048
     Dates: start: 20070920, end: 20080401

REACTIONS (13)
  - COLITIS [None]
  - COLONIC POLYP [None]
  - CONFUSIONAL STATE [None]
  - DIARRHOEA [None]
  - DIARRHOEA HAEMORRHAGIC [None]
  - DIZZINESS [None]
  - HOT FLUSH [None]
  - NIGHT SWEATS [None]
  - NO THERAPEUTIC RESPONSE [None]
  - PAIN [None]
  - REBOUND EFFECT [None]
  - TREMOR [None]
  - WEIGHT DECREASED [None]
